FAERS Safety Report 10467203 (Version 3)
Quarter: 2015Q1

REPORT INFORMATION
  Report Type: Spontaneous
  Country: US (occurrence: US)
  Receive Date: 20140922
  Receipt Date: 20150326
  Transmission Date: 20150720
  Serious: Yes (Death, Hospitalization, Other)
  Sender: FDA-Public Use
  Company Number: US-MERCK-1409USA009878

PATIENT
  Sex: Male
  Weight: 104.31 kg

DRUGS (7)
  1. TRIAMTERENE. [Concomitant]
     Active Substance: TRIAMTERENE
     Indication: HYPERTENSION
  2. GLIPIZIDE. [Concomitant]
     Active Substance: GLIPIZIDE
     Indication: TYPE 2 DIABETES MELLITUS
     Dosage: UNK
     Dates: start: 20040626, end: 20120529
  3. DOXAZOSIN MESYLATE. [Concomitant]
     Active Substance: DOXAZOSIN MESYLATE
     Indication: PROSTATOMEGALY
     Dosage: UNK
     Dates: start: 20070403, end: 20120609
  4. JANUVIA [Suspect]
     Active Substance: SITAGLIPTIN PHOSPHATE
     Indication: TYPE 2 DIABETES MELLITUS
     Dosage: 50 MG, QD
     Route: 048
     Dates: start: 20110328, end: 20121202
  5. TRIAMTERENE. [Concomitant]
     Active Substance: TRIAMTERENE
     Indication: OEDEMA
     Dosage: UNK
     Dates: start: 20020508, end: 20120221
  6. PROBENECID. [Concomitant]
     Active Substance: PROBENECID
     Indication: ARTHRITIS
     Dosage: UNK
     Dates: start: 20020504, end: 20120529
  7. PLAVIX [Concomitant]
     Active Substance: CLOPIDOGREL BISULFATE
     Dosage: UNK
     Dates: start: 20051021, end: 20120407

REACTIONS (31)
  - Serratia sepsis [Unknown]
  - Cholelithiasis [Unknown]
  - Helicobacter infection [Unknown]
  - Anaemia of chronic disease [Not Recovered/Not Resolved]
  - Serratia infection [Unknown]
  - Decreased appetite [Unknown]
  - Gastritis [Unknown]
  - Haematuria traumatic [Unknown]
  - Chronic kidney disease [Not Recovered/Not Resolved]
  - Pancreatic cyst [Unknown]
  - Gout [Unknown]
  - Coagulopathy [Unknown]
  - Metastases to liver [Unknown]
  - Hyperlipidaemia [Unknown]
  - Atrial fibrillation [Unknown]
  - Myocardial infarction [Recovered/Resolved]
  - Coronary artery bypass [Unknown]
  - Hypertensive heart disease [Unknown]
  - Coronary artery restenosis [Unknown]
  - Malnutrition [Unknown]
  - Cholecystectomy [Unknown]
  - Diabetic gastropathy [Unknown]
  - Hypoalbuminaemia [Unknown]
  - Bile duct exploration [Unknown]
  - Acute kidney injury [Recovered/Resolved]
  - Deep vein thrombosis [Unknown]
  - Vena cava filter insertion [Unknown]
  - Pancreatic carcinoma [Fatal]
  - Biopsy [Unknown]
  - Scrotal oedema [Unknown]
  - Confusional state [Unknown]

NARRATIVE: CASE EVENT DATE: 20120209
